FAERS Safety Report 7346527-4 (Version None)
Quarter: 2011Q1

REPORT INFORMATION
  Report Type: 
  Country: None (occurrence: None)
  Receive Date: 20110311
  Receipt Date: 20110228
  Transmission Date: 20110831
  Serious: Yes (Hospitalization, Other)
  Sender: FDA-Public Use
  Company Number: GB-JNJFOC-20110300685

PATIENT
  Age: 64 Year
  Sex: Female
  Weight: 74 kg

DRUGS (12)
  1. LOVAZA [Concomitant]
  2. TAMOXIFEN CITRATE [Suspect]
     Indication: PRODUCT USED FOR UNKNOWN INDICATION
  3. METHOTREXATE [Concomitant]
  4. CETIRIZINE HCL [Concomitant]
  5. FOLIC ACID [Concomitant]
  6. CALCICHEW-D3 [Concomitant]
  7. ADCAL [Concomitant]
  8. EYE DROPS [Concomitant]
  9. REMICADE [Suspect]
     Indication: RHEUMATOID ARTHRITIS
     Route: 042
  10. MELOXICAM [Concomitant]
  11. SALBUTAMOL [Concomitant]
  12. CO-CODAMOL [Concomitant]

REACTIONS (2)
  - BREAST CANCER [None]
  - DEEP VEIN THROMBOSIS [None]
